FAERS Safety Report 9717221 (Version 1)
Quarter: 2013Q4

REPORT INFORMATION
  Report Type: Spontaneous
  Country: US (occurrence: US)
  Receive Date: 20131127
  Receipt Date: 20131127
  Transmission Date: 20140711
  Serious: Yes (Hospitalization)
  Sender: FDA-Public Use
  Company Number: US-GILEAD-2013-0088575

PATIENT
  Age: 74 Year
  Sex: Female

DRUGS (5)
  1. LETAIRIS [Suspect]
     Indication: PULMONARY HYPERTENSION
     Dosage: 10 MG, QD
     Dates: start: 20081127
  2. CALCITRIOL [Concomitant]
  3. SINGULAIR [Concomitant]
  4. CARDIZEM                           /00489701/ [Concomitant]
  5. LASIX                              /00032601/ [Concomitant]

REACTIONS (2)
  - Unevaluable event [Unknown]
  - Dyspnoea [Not Recovered/Not Resolved]
